FAERS Safety Report 4381988-4 (Version None)
Quarter: 2004Q2

REPORT INFORMATION
  Report Type: 
  Country: None (occurrence: None)
  Receive Date: 20040603
  Receipt Date: 20030505
  Transmission Date: 20050107
  Serious: Yes (Hospitalization)
  Sender: FDA-Public Use
  Company Number: 200314254US

PATIENT
  Age: 48 Year
  Sex: Female

DRUGS (6)
  1. LOVENOX [Suspect]
     Dates: start: 20030430
  2. HEPARIN [Concomitant]
  3. PARACETAMOL, DEXTROPROPOXYPHENE NAPSILATE (DARVOCET-N) [Concomitant]
  4. AMARYL [Concomitant]
  5. CAFFEINE, BUTALBITAL, PARACETAMOL (FIORICET) [Concomitant]
  6. ANTIBIOTICS [Concomitant]

REACTIONS (4)
  - COUGH [None]
  - HEADACHE [None]
  - NASAL SINUS DRAINAGE [None]
  - PYREXIA [None]
